FAERS Safety Report 24625815 (Version 1)
Quarter: 2024Q4

REPORT INFORMATION
  Report Type: Spontaneous
  Country: US (occurrence: US)
  Receive Date: 20241115
  Receipt Date: 20241115
  Transmission Date: 20250114
  Serious: Yes (Hospitalization)
  Sender: ANI
  Company Number: US-ANIPHARMA-2024-US-050293

PATIENT
  Age: 90 Year
  Sex: Female
  Weight: 58.97 kg

DRUGS (1)
  1. CORTICOTROPIN [Suspect]
     Active Substance: CORTICOTROPIN
     Indication: Rheumatoid arthritis
     Dosage: INJECT 40 UNITS ( 0.5 ML ) UNDER THE SKIN (SUBCUTANEOUS INJECTION) 4 TIMES A WEEK
     Route: 058
     Dates: start: 20240416

REACTIONS (3)
  - COVID-19 [Unknown]
  - Pneumonia [Unknown]
  - Product dose omission issue [Not Recovered/Not Resolved]

NARRATIVE: CASE EVENT DATE: 20240901
